FAERS Safety Report 12632847 (Version 2)
Quarter: 2016Q3

REPORT INFORMATION
  Report Type: Spontaneous
  Country: US (occurrence: US)
  Receive Date: 20160808
  Receipt Date: 20160808
  Transmission Date: 20161109
  Serious: No
  Sender: FDA-Public Use
  Company Number: US-BEH-2015057258

PATIENT
  Sex: Female
  Weight: 50 kg

DRUGS (20)
  1. TRAMADOL. [Concomitant]
     Active Substance: TRAMADOL
  2. TOPAMAX [Concomitant]
     Active Substance: TOPIRAMATE
  3. LEVAQUIN [Concomitant]
     Active Substance: LEVOFLOXACIN
  4. HIZENTRA [Suspect]
     Active Substance: HUMAN IMMUNOGLOBULIN G
     Route: 058
  5. HIZENTRA [Suspect]
     Active Substance: HUMAN IMMUNOGLOBULIN G
     Indication: IMMUNODEFICIENCY COMMON VARIABLE
     Route: 058
  6. IMITREX [Concomitant]
     Active Substance: SUMATRIPTAN SUCCINATE
  7. LOESTRIN 24 FE [Concomitant]
     Active Substance: ETHINYL ESTRADIOL\NORETHINDRONE ACETATE
  8. ACETAMINOPHEN. [Concomitant]
     Active Substance: ACETAMINOPHEN
  9. IPRATROPIUM [Concomitant]
     Active Substance: IPRATROPIUM
     Dosage: SPRAY
  10. LMX [Concomitant]
     Active Substance: LIDOCAINE
  11. PREDNISONE. [Concomitant]
     Active Substance: PREDNISONE
  12. ALPRAZOLAM. [Concomitant]
     Active Substance: ALPRAZOLAM
  13. DIPHENHYDRAMINE. [Concomitant]
     Active Substance: DIPHENHYDRAMINE
  14. FLUTICASONE PROP [Concomitant]
  15. AVELOX [Concomitant]
     Active Substance: MOXIFLOXACIN HYDROCHLORIDE
  16. ACYCLOVIR. [Concomitant]
     Active Substance: ACYCLOVIR
  17. HIZENTRA [Suspect]
     Active Substance: HUMAN IMMUNOGLOBULIN G
     Route: 058
  18. SYNTHROID [Concomitant]
     Active Substance: LEVOTHYROXINE SODIUM
  19. ZYRTEC [Concomitant]
     Active Substance: CETIRIZINE HYDROCHLORIDE
  20. EPIPEN [Concomitant]
     Active Substance: EPINEPHRINE

REACTIONS (1)
  - Sinusitis [Unknown]
